FAERS Safety Report 8436769-9 (Version None)
Quarter: 2012Q2

REPORT INFORMATION
  Report Type: 
  Country: None (occurrence: None)
  Receive Date: 20120614
  Receipt Date: 20120612
  Transmission Date: 20120825
  Serious: Yes (Hospitalization)
  Sender: FDA-Public Use
  Company Number: US-PFIZER INC-2012142194

PATIENT
  Sex: Female
  Weight: 79.365 kg

DRUGS (3)
  1. LIPITOR [Suspect]
     Indication: BLOOD CHOLESTEROL INCREASED
     Dosage: 10 MG, DAILY
  2. LOTREL [Concomitant]
     Indication: HYPERTENSION
     Dosage: 5/20 MG, DAILY
  3. JANUMET [Concomitant]
     Indication: DIABETES MELLITUS
     Dosage: UNKNOWN DOSE DAILY

REACTIONS (4)
  - WEIGHT DECREASED [None]
  - FALL [None]
  - RIB FRACTURE [None]
  - CLAVICLE FRACTURE [None]
